FAERS Safety Report 15695141 (Version 1)
Quarter: 2018Q4

REPORT INFORMATION
  Report Type: Spontaneous
  Country: US (occurrence: US)
  Receive Date: 20181126
  Receipt Date: 20181126
  Transmission Date: 20190205
  Serious: Yes (Other)
  Sender: FDA-Public Use
  Company Number: None

PATIENT
  Age: 37 Year
  Sex: Female
  Weight: 78.75 kg

DRUGS (1)
  1. SALONPAS PAIN RELIEF [Suspect]
     Active Substance: MENTHOL\METHYL SALICYLATE
     Indication: PAIN
     Dosage: ?          QUANTITY:6 PATCH(ES);?
     Route: 062

REACTIONS (5)
  - Skin exfoliation [None]
  - Skin lesion [None]
  - Application site vesicles [None]
  - Blister [None]
  - Skin haemorrhage [None]

NARRATIVE: CASE EVENT DATE: 20181015
